FAERS Safety Report 5185757-7 (Version None)
Quarter: 2006Q4

REPORT INFORMATION
  Report Type: 
  Country: None (occurrence: None)
  Receive Date: 20061220
  Receipt Date: 20061213
  Transmission Date: 20070319
  Serious: Yes (Other)
  Sender: FDA-Public Use
  Company Number: AU-BRISTOL-MYERS SQUIBB COMPANY-13611496

PATIENT
  Age: 51 Year
  Sex: Male

DRUGS (7)
  1. VIDEX [Suspect]
     Indication: HIV INFECTION
     Dates: start: 19921001, end: 20010107
  2. RIBOFLAVIN TAB [Suspect]
     Dates: start: 19990824
  3. PROLEUKIN [Suspect]
     Dates: start: 20010102, end: 20010106
  4. BACTRIM DS [Suspect]
     Dates: start: 19931115
  5. COMBIVIR [Suspect]
     Indication: HIV INFECTION
     Dates: start: 19981208, end: 20010107
  6. QUINAPRIL HCL [Suspect]
     Indication: HYPERTENSION
     Dates: start: 19990924
  7. COENZYME Q10 [Suspect]
     Dates: start: 19990824

REACTIONS (10)
  - ABDOMINAL PAIN [None]
  - ATRIAL FIBRILLATION [None]
  - BLOOD AMYLASE INCREASED [None]
  - BLOOD CREATINE PHOSPHOKINASE INCREASED [None]
  - FLATULENCE [None]
  - NEPHROLITHIASIS [None]
  - PANCREATITIS [None]
  - PORTAL HYPERTENSION [None]
  - SPLENOMEGALY [None]
  - SUPRAVENTRICULAR TACHYCARDIA [None]
